FAERS Safety Report 24061551 (Version 6)
Quarter: 2025Q3

REPORT INFORMATION
  Report Type: Report from Study
  Country: EU (occurrence: EU)
  Receive Date: 20240708
  Receipt Date: 20250915
  Transmission Date: 20251020
  Serious: Yes (Hospitalization)
  Sender: ALEXION PHARMACEUTICALS
  Company Number: 2024A150962

PATIENT
  Age: 45 Year
  Sex: Female
  Weight: 73 kg

DRUGS (7)
  1. ANIFROLUMAB [Suspect]
     Active Substance: ANIFROLUMAB
     Indication: Systemic lupus erythematosus
  2. ANIFROLUMAB [Suspect]
     Active Substance: ANIFROLUMAB
  3. ANIFROLUMAB [Suspect]
     Active Substance: ANIFROLUMAB
  4. PLAQUENIL [Concomitant]
     Active Substance: HYDROXYCHLOROQUINE SULFATE
     Indication: Systemic lupus erythematosus
     Dosage: 400 MILLIGRAM, QD
     Dates: start: 20221219
  5. PREDNISONE [Concomitant]
     Active Substance: PREDNISONE
     Indication: Systemic lupus erythematosus
     Dosage: 5 MILLIGRAM, QD
     Dates: start: 20221219
  6. VALACYCLOVIR HYDROCHLORIDE [Concomitant]
     Active Substance: VALACYCLOVIR HYDROCHLORIDE
     Indication: Varicella zoster virus infection
     Dosage: 500 MILLIGRAM, QD
     Dates: start: 20231219
  7. METHOTREXATE SODIUM [Concomitant]
     Active Substance: METHOTREXATE SODIUM
     Indication: Rheumatoid arthritis

REACTIONS (1)
  - Tonsillitis streptococcal [Recovered/Resolved]

NARRATIVE: CASE EVENT DATE: 20240625
